FAERS Safety Report 4307228-X (Version None)
Quarter: 2004Q1

REPORT INFORMATION
  Report Type: 
  Country: None (occurrence: None)
  Receive Date: 20040223
  Receipt Date: 20030817
  Transmission Date: 20041129
  Serious: Yes (Hospitalization)
  Sender: FDA-Public Use
  Company Number: US20030007

PATIENT
  Age: 39 Year
  Sex: Female

DRUGS (3)
  1. OXILAN-300 [Suspect]
     Indication: ABDOMEN SCAN
     Dosage: 150 ML, 1 X, IV
     Route: 042
     Dates: start: 20030626
  2. OXILAN-300 [Suspect]
     Indication: BONE SCAN
     Dosage: 150 ML, 1 X, IV
     Route: 042
     Dates: start: 20030626
  3. OXILAN-300 [Suspect]
     Indication: COMPUTERISED TOMOGRAM
     Dosage: 150 ML, 1 X, IV
     Route: 042
     Dates: start: 20030626

REACTIONS (3)
  - SNEEZING [None]
  - THROAT TIGHTNESS [None]
  - URTICARIA [None]
